FAERS Safety Report 3980821 (Version 2)
Quarter: 2017Q3

REPORT INFORMATION
  Report Type: Spontaneous
  Country: OM (occurrence: OM)
  Receive Date: 20030725
  Receipt Date: 20170825
  Transmission Date: 20171128
  Serious: Yes (Other)
  Sender: FDA-Public Use
  Company Number: PHBS2003OM07471

PATIENT
  Age: 30 Year
  Sex: Female

DRUGS (4)
  1. METRONIDAZOLE. [Suspect]
     Active Substance: METRONIDAZOLE
     Indication: PRODUCT USED FOR UNKNOWN INDICATION
     Dosage: 500 MG, Q8H
     Route: 048
  2. METHYLERGOMETRINE [Suspect]
     Active Substance: METHYLERGONOVINE MALEATE
     Indication: PRODUCT USED FOR UNKNOWN INDICATION
     Dosage: 0.125 MG, Q8H (TABLET)
     Route: 048
  3. METRONIDAZOLE. [Suspect]
     Active Substance: METRONIDAZOLE
     Dosage: UNK
     Route: 041
  4. METHERGINE [Suspect]
     Active Substance: METHYLERGONOVINE MALEATE
     Indication: PRODUCT USED FOR UNKNOWN INDICATION
     Dosage: 0.2 MG, QD
     Route: 042

REACTIONS (5)
  - Atrioventricular block second degree [Recovered/Resolved]
  - Sinus arrhythmia [Recovered/Resolved]
  - Hyperhidrosis [Recovered/Resolved]
  - Angina pectoris [Recovered/Resolved]
  - Ventricular extrasystoles [Recovered/Resolved]
